FAERS Safety Report 8717418 (Version 3)
Quarter: 2012Q4

REPORT INFORMATION
  Report Type: 
  Country: AU (occurrence: AU)
  Receive Date: 20120810
  Receipt Date: 20120928
  Transmission Date: 20130627
  Serious: Yes (Death, Hospitalization)
  Sender: FDA-Public Use
  Company Number: AU-B.I. PHARMACEUTICALS,INC./RIDGEFIELD-2012-AU-01384AU

PATIENT
  Age: 90 Year
  Sex: Female
  Weight: 62.2 kg

DRUGS (7)
  1. PRADAXA [Suspect]
     Indication: CEREBROVASCULAR ACCIDENT PROPHYLAXIS
     Dosage: 220 mg
     Dates: start: 20110618
  2. PRADAXA [Suspect]
     Indication: ATRIAL FIBRILLATION
  3. ATENOLOL [Concomitant]
  4. DIGOXIN [Concomitant]
  5. NEXIUM [Concomitant]
  6. OMEGA 3 FISH OIL [Concomitant]
  7. VITAMIN D [Concomitant]

REACTIONS (1)
  - Cerebrovascular accident [Fatal]
